FAERS Safety Report 13920893 (Version 5)
Quarter: 2018Q2

REPORT INFORMATION
  Report Type: Spontaneous
  Country: JP (occurrence: JP)
  Receive Date: 20170830
  Receipt Date: 20180622
  Transmission Date: 20180711
  Serious: Yes (Hospitalization, Other)
  Sender: FDA-Public Use
  Company Number: JP-SHIRE-JP201719923

PATIENT

DRUGS (11)
  1. FEIBA NF [Suspect]
     Active Substance: ANTI-INHIBITOR COAGULANT COMPLEX
     Indication: FACTOR VIII DEFICIENCY
     Dosage: UNK
     Route: 042
  2. FEIBA NF [Suspect]
     Active Substance: ANTI-INHIBITOR COAGULANT COMPLEX
     Dosage: 6000 IU, 3X A WEEK
     Route: 042
     Dates: start: 20170704, end: 20170830
  3. NOVOEIGHT [Suspect]
     Active Substance: ANTIHEMOPHILIC FACTOR, HUMAN RECOMBINANT
     Indication: HAEMOSTASIS
     Dosage: 6000 IU, 3X A WEEK
     Route: 042
     Dates: start: 20170704
  4. FEIBA NF [Suspect]
     Active Substance: ANTI-INHIBITOR COAGULANT COMPLEX
     Indication: HAEMOSTASIS
     Dosage: 6000 IU, QOD
     Route: 042
     Dates: start: 20170130
  5. NOVOEIGHT [Suspect]
     Active Substance: ANTIHEMOPHILIC FACTOR, HUMAN RECOMBINANT
     Indication: FACTOR VIII DEFICIENCY
     Dosage: 6000 IU, 3X A WEEK
     Route: 042
     Dates: start: 20170607, end: 20170628
  6. NOVOSEVEN [Concomitant]
     Active Substance: COAGULATION FACTOR VIIA RECOMBINANT HUMAN
     Dosage: UNK
     Route: 042
     Dates: start: 201705
  7. FEIBA NF [Suspect]
     Active Substance: ANTI-INHIBITOR COAGULANT COMPLEX
     Dosage: 6000 IU, 3X A WEEK
     Route: 042
     Dates: start: 20170509, end: 20170628
  8. NOVOSEVEN [Concomitant]
     Active Substance: COAGULATION FACTOR VIIA RECOMBINANT HUMAN
     Indication: HAEMOSTASIS
     Dosage: UNK
     Route: 042
     Dates: start: 20170126, end: 20170130
  9. FEIBA NF [Suspect]
     Active Substance: ANTI-INHIBITOR COAGULANT COMPLEX
     Dosage: 100 IU, 2X A WEEK
     Route: 042
     Dates: start: 20170831
  10. NOVOEIGHT [Suspect]
     Active Substance: ANTIHEMOPHILIC FACTOR, HUMAN RECOMBINANT
     Indication: IMMUNE TOLERANCE INDUCTION
  11. NOVOSEVEN [Concomitant]
     Active Substance: COAGULATION FACTOR VIIA RECOMBINANT HUMAN
     Dosage: UNK
     Route: 042
     Dates: start: 20170628, end: 201707

REACTIONS (14)
  - Haemarthrosis [Unknown]
  - Melaena [Unknown]
  - Haemarthrosis [Unknown]
  - Haemorrhage subcutaneous [Unknown]
  - Haemorrhage [Recovering/Resolving]
  - Intervertebral discitis [Unknown]
  - Joint swelling [Unknown]
  - Factor VIII inhibition [Not Recovered/Not Resolved]
  - Feeling abnormal [Unknown]
  - Injury [Unknown]
  - Muscle haemorrhage [Unknown]
  - Device related infection [Unknown]
  - Inguinal hernia [Unknown]
  - Subcutaneous haematoma [Unknown]

NARRATIVE: CASE EVENT DATE: 2017
